FAERS Safety Report 9649880 (Version 1)
Quarter: 2013Q4

REPORT INFORMATION
  Report Type: Spontaneous
  Country: US (occurrence: US)
  Receive Date: 20131028
  Receipt Date: 20131028
  Transmission Date: 20140711
  Serious: No
  Sender: FDA-Public Use
  Company Number: US-PURDUE-USA-2013-0101000

PATIENT
  Sex: Male

DRUGS (3)
  1. OXYCONTIN TABLETS [Suspect]
     Indication: PAIN
     Dosage: 80 MG, BID
     Route: 048
     Dates: start: 2000
  2. MORPHINE SULPHATE [Concomitant]
     Indication: BREAKTHROUGH PAIN
     Dosage: 60 MG, Q4H PRN
     Route: 048
     Dates: start: 2000
  3. XANAX [Concomitant]
     Indication: ANXIETY
     Dosage: 2 MG, AT BEDTIME
     Route: 048
     Dates: start: 2000

REACTIONS (1)
  - Migraine [Not Recovered/Not Resolved]
